FAERS Safety Report 7554327-5 (Version None)
Quarter: 2011Q2

REPORT INFORMATION
  Report Type: 
  Country: None (occurrence: None)
  Receive Date: 20110617
  Receipt Date: 20110613
  Transmission Date: 20111010
  Serious: Yes (Other)
  Sender: FDA-Public Use
  Company Number: US-PFIZER INC-2011129627

PATIENT
  Sex: Female
  Weight: 54.4 kg

DRUGS (4)
  1. PREMARIN [Suspect]
     Dosage: UNK
     Route: 048
     Dates: start: 20100101, end: 20100101
  2. NORTRIPTYLINE [Concomitant]
     Indication: HEADACHE
     Dosage: 50 MG, DAILY
     Route: 048
  3. PREMARIN [Suspect]
     Indication: VULVOVAGINAL DRYNESS
     Dosage: UNK, DAILY
     Route: 067
     Dates: start: 20100101
  4. OMEPRAZOLE [Concomitant]
     Indication: GASTROOESOPHAGEAL REFLUX DISEASE
     Dosage: 20 MG, 2X/DAY
     Route: 048

REACTIONS (3)
  - URINARY TRACT INFECTION [None]
  - FUNGAL INFECTION [None]
  - DRUG INEFFECTIVE [None]
